FAERS Safety Report 18730200 (Version 1)
Quarter: 2021Q1

REPORT INFORMATION
  Report Type: Report from Study
  Country: US (occurrence: US)
  Receive Date: 20210112
  Receipt Date: 20210112
  Transmission Date: 20210419
  Serious: Yes (Hospitalization)
  Sender: FDA-Public Use
  Company Number: US-BAYER-2021-020921

PATIENT
  Age: 25 Year
  Sex: Female

DRUGS (1)
  1. ADEMPAS [Suspect]
     Active Substance: RIOCIGUAT
     Indication: PULMONARY HYPERTENSION
     Dosage: UNK
     Dates: end: 202012

REACTIONS (3)
  - Hospitalisation [Not Recovered/Not Resolved]
  - Product availability issue [None]
  - Incorrect product administration duration [None]

NARRATIVE: CASE EVENT DATE: 202012
